FAERS Safety Report 16572684 (Version 1)
Quarter: 2019Q3

REPORT INFORMATION
  Report Type: Spontaneous
  Country: IT (occurrence: IT)
  Receive Date: 20190715
  Receipt Date: 20190715
  Transmission Date: 20191004
  Serious: Yes (Hospitalization)
  Sender: FDA-Public Use
  Company Number: IT-MYLANLABS-2019M1064853

PATIENT
  Age: 48 Year
  Sex: Female

DRUGS (4)
  1. INFLUENZA VACCINE INACT [Suspect]
     Active Substance: INFLUENZA VIRUS VACCINE
     Indication: INFLUENZA IMMUNISATION
     Dosage: UNK
     Route: 065
  2. IBUPROFEN. [Suspect]
     Active Substance: IBUPROFEN
     Indication: PERICARDIAL EFFUSION
     Dosage: 600 MG, TID
     Route: 065
  3. COLCHICINE. [Suspect]
     Active Substance: COLCHICINE
     Indication: PERICARDIAL EFFUSION
     Dosage: 0.5 MG, QD
     Route: 065
  4. COLCHICINE. [Suspect]
     Active Substance: COLCHICINE
     Dosage: 0.5 MG, BID
     Route: 065

REACTIONS (19)
  - Diastolic dysfunction [Unknown]
  - Intentional product misuse [Unknown]
  - Atelectasis [Unknown]
  - Respiratory alkalosis [Unknown]
  - Bronchial wall thickening [Unknown]
  - Acute respiratory failure [Unknown]
  - Diarrhoea [Unknown]
  - Hypoxia [Unknown]
  - Pericardial effusion [Recovered/Resolved]
  - Syncope [Recovered/Resolved]
  - Bundle branch block right [Unknown]
  - Influenza like illness [Recovered/Resolved]
  - Dyspnoea [Unknown]
  - Pulmonary hypertension [Unknown]
  - Condition aggravated [Recovered/Resolved]
  - Urinary incontinence [Recovered/Resolved]
  - Off label use [Unknown]
  - Pleural effusion [Unknown]
  - Metabolic alkalosis [Unknown]
